FAERS Safety Report 13321334 (Version 1)
Quarter: 2017Q1

REPORT INFORMATION
  Report Type: Report from Study
  Country: IE (occurrence: IE)
  Receive Date: 20170309
  Receipt Date: 20170309
  Transmission Date: 20170428
  Serious: Yes (Other)
  Sender: FDA-Public Use
  Company Number: IE-AMGEN-IRLSL2017035418

PATIENT
  Age: 62 Year
  Sex: Male

DRUGS (8)
  1. FEXOFENADINE HYDROCHLORIDE. [Concomitant]
     Active Substance: FEXOFENADINE HYDROCHLORIDE
     Dosage: 180 MG, UNK
     Route: 050
  2. NEULASTA [Suspect]
     Active Substance: PEGFILGRASTIM
     Indication: GASTROINTESTINAL CARCINOMA
     Dosage: 6 MG, Q2WK (POST CHEMOTHERAPY 2 WEEKLY CYCLE)
     Route: 058
     Dates: start: 20170303
  3. NEULASTA [Suspect]
     Active Substance: PEGFILGRASTIM
     Indication: METASTASIS
  4. MINOSIL [Concomitant]
     Dosage: 100 MG, UNK
     Route: 050
  5. ZOPICLONE [Concomitant]
     Active Substance: ZOPICLONE
     Dosage: 7.5 MG, NIGHT
     Route: 050
  6. OMEPRAZOLE. [Concomitant]
     Active Substance: OMEPRAZOLE
     Dosage: 40 MG, MORNING
     Route: 050
  7. MEFENAMIC ACID. [Concomitant]
     Active Substance: MEFENAMIC ACID
     Dosage: 500 MG, QD (ONCE DAILY)
     Route: 050
  8. VALACICLOVIR [Concomitant]
     Active Substance: VALACYCLOVIR HYDROCHLORIDE
     Dosage: 500 MG, QD (ONCE DAILY)
     Route: 050

REACTIONS (3)
  - Back pain [Not Recovered/Not Resolved]
  - Cardiac flutter [Not Recovered/Not Resolved]
  - Musculoskeletal pain [Not Recovered/Not Resolved]

NARRATIVE: CASE EVENT DATE: 20170305
